FAERS Safety Report 7288923-X (Version None)
Quarter: 2011Q1

REPORT INFORMATION
  Report Type: 
  Country: None (occurrence: None)
  Receive Date: 20110211
  Receipt Date: 20110202
  Transmission Date: 20110831
  Serious: Yes (Hospitalization, Other)
  Sender: FDA-Public Use
  Company Number: US-PURDUE-USA-2011-0063458

PATIENT
  Age: 14 Year
  Sex: Male

DRUGS (2)
  1. MORPHINE SULFATE [Suspect]
     Dosage: 60 MG, SINGLE
     Dates: start: 20110101
  2. MORPHINE SULFATE [Suspect]
     Indication: PAIN
     Dosage: 30 MG, Q12H
     Dates: start: 20101001

REACTIONS (18)
  - NAUSEA [None]
  - HALLUCINATION [None]
  - PARANOIA [None]
  - TREMOR [None]
  - APHASIA [None]
  - FEELING ABNORMAL [None]
  - MUSCULAR WEAKNESS [None]
  - DYSKINESIA [None]
  - NEGATIVE THOUGHTS [None]
  - ABNORMAL BEHAVIOUR [None]
  - DYSPNOEA [None]
  - CONFUSIONAL STATE [None]
  - VOMITING [None]
  - SEROTONIN SYNDROME [None]
  - MENTAL IMPAIRMENT [None]
  - NIGHTMARE [None]
  - MUSCLE TWITCHING [None]
  - ASTHENIA [None]
